FAERS Safety Report 18246506 (Version 2)
Quarter: 2021Q3

REPORT INFORMATION
  Report Type: Spontaneous
  Country: US (occurrence: US)
  Receive Date: 20200909
  Receipt Date: 20210716
  Transmission Date: 20211014
  Serious: Yes (Other)
  Sender: FDA-Public Use
  Company Number: US-SA-2020SA243841

PATIENT
  Age: 57 Year
  Sex: Male

DRUGS (2)
  1. ZANTAC [Suspect]
     Active Substance: RANITIDINE HYDROCHLORIDE
     Indication: DYSPEPSIA
     Dosage: 75 MG, FREQUENCY: OTHER
     Dates: start: 201503
  2. ZANTAC [Suspect]
     Active Substance: RANITIDINE HYDROCHLORIDE
     Indication: ABDOMINAL DISCOMFORT
     Dosage: 150 MG, FREQUENCY: OTHER
     Dates: end: 201708

REACTIONS (3)
  - Hepatic cancer [Unknown]
  - Colorectal cancer [Unknown]
  - Rectal cancer stage IV [Unknown]

NARRATIVE: CASE EVENT DATE: 20190624
